FAERS Safety Report 11538548 (Version 1)
Quarter: 2015Q3

REPORT INFORMATION
  Report Type: Spontaneous
  Country: US (occurrence: US)
  Receive Date: 20150922
  Receipt Date: 20150922
  Transmission Date: 20151125
  Serious: Yes (Hospitalization, Other)
  Sender: FDA-Public Use
  Company Number: US-BRISTOL-MYERS SQUIBB COMPANY-BMS-2015-061724

PATIENT
  Sex: Female
  Weight: 210 kg

DRUGS (3)
  1. ORENCIA [Suspect]
     Active Substance: ABATACEPT
     Indication: RHEUMATOID ARTHRITIS
     Route: 042
  2. OXYCODONE [Concomitant]
     Active Substance: OXYCODONE
     Indication: PRODUCT USED FOR UNKNOWN INDICATION
     Dosage: 1 UNK, UNK
     Route: 065
  3. PREDNISONE. [Concomitant]
     Active Substance: PREDNISONE
     Indication: PRODUCT USED FOR UNKNOWN INDICATION
     Dosage: 15 MG, QD
     Route: 065

REACTIONS (11)
  - Staphylococcal infection [Unknown]
  - Dyspnoea [Unknown]
  - Goitre [Unknown]
  - Body height decreased [Unknown]
  - Transfusion [Unknown]
  - Dyskinesia [Unknown]
  - Movement disorder [Unknown]
  - Knee operation [Unknown]
  - Dysphagia [Unknown]
  - Dizziness [Unknown]
  - Full blood count decreased [Unknown]
